FAERS Safety Report 5031107-6 (Version None)
Quarter: 2006Q2

REPORT INFORMATION
  Report Type: 
  Country: None (occurrence: None)
  Receive Date: 20060504
  Receipt Date: 20060303
  Transmission Date: 20061013
  Serious: Yes (Life-Threatening, Hospitalization, Other)
  Sender: FDA-Public Use
  Company Number: PAR_0534_2006

PATIENT
  Age: 78 Year
  Sex: Male
  Weight: 81.1939 kg

DRUGS (12)
  1. MEGACE ES [Suspect]
     Dosage: 625 MG QDAY PO
     Route: 048
     Dates: start: 20060101
  2. NEXIUM [Concomitant]
  3. OCUVITE /01053801/ [Concomitant]
  4. FELODIPINE [Concomitant]
  5. LISINOPRIL [Concomitant]
  6. ALLOPURINOL [Concomitant]
  7. SYNTHROID [Concomitant]
  8. FOLIC ACID [Concomitant]
  9. VITAMIN B-12 [Concomitant]
  10. ECOTRIN [Concomitant]
  11. NORVASC [Concomitant]
  12. PYRIDOXINE HCL [Concomitant]

REACTIONS (3)
  - DEEP VEIN THROMBOSIS [None]
  - PNEUMONIA [None]
  - PULMONARY EMBOLISM [None]
